FAERS Safety Report 5933862-7 (Version None)
Quarter: 2008Q4

REPORT INFORMATION
  Report Type: 
  Country: None (occurrence: None)
  Receive Date: 20081029
  Receipt Date: 20081023
  Transmission Date: 20090506
  Serious: Yes (Death)
  Sender: FDA-Public Use
  Company Number: US-KINGPHARMUSA00001-K200801221

PATIENT

DRUGS (4)
  1. ALTACE [Suspect]
     Dosage: 5 MG, QD
     Route: 048
     Dates: end: 20080804
  2. CHEMOTHERAPEUTICS (CYTOSTATIC) [Suspect]
  3. VFEND [Concomitant]
     Dosage: 200 MG, UNK
     Dates: end: 20080801
  4. NEXIUM [Concomitant]
     Dosage: 40 MG, UNK
     Route: 048
     Dates: end: 20080813

REACTIONS (3)
  - BRONCHOPULMONARY ASPERGILLOSIS [None]
  - CIRCULATORY COLLAPSE [None]
  - SEPTIC SHOCK [None]
